FAERS Safety Report 10086638 (Version 3)
Quarter: 2014Q3

REPORT INFORMATION
  Report Type: Spontaneous
  Country: IT (occurrence: IT)
  Receive Date: 20140418
  Receipt Date: 20140722
  Transmission Date: 20150326
  Serious: Yes (Hospitalization)
  Sender: FDA-Public Use
  Company Number: IT-PFIZER INC-2014108670

PATIENT
  Age: 36 Year
  Sex: Female

DRUGS (2)
  1. CO-EFFERALGAN [Suspect]
     Active Substance: ACETAMINOPHEN\CODEINE PHOSPHATE
     Dosage: 6 DFTOTAL, SINGLE
     Route: 048
     Dates: start: 20130804, end: 20130804
  2. TRIAZOLAM. [Suspect]
     Active Substance: TRIAZOLAM
     Dosage: 5 MG TOTAL, SINGLE
     Route: 048
     Dates: start: 20130804, end: 20130804

REACTIONS (6)
  - Miosis [Recovering/Resolving]
  - Amnesia [Unknown]
  - Intentional overdose [Unknown]
  - Hyporesponsive to stimuli [Unknown]
  - Loss of consciousness [Recovering/Resolving]
  - Sopor [Recovering/Resolving]

NARRATIVE: CASE EVENT DATE: 20130804
